FAERS Safety Report 6737032-4 (Version None)
Quarter: 2010Q2

REPORT INFORMATION
  Report Type: 
  Country: None (occurrence: None)
  Receive Date: 20100523
  Receipt Date: 20091014
  Transmission Date: 20101027
  Serious: Yes (Other)
  Sender: FDA-Public Use
  Company Number: GB-BRISTOL-MYERS SQUIBB COMPANY-14819965

PATIENT
  Age: 32 Year
  Sex: Male

DRUGS (1)
  1. BUSPAR [Suspect]
     Dosage: ISSUED 28 BUSPIRONE 10MG TABLETS  PRESCRIBED FOUR 10MG TABLETS PER DAY
     Dates: start: 20091001, end: 20091001

REACTIONS (1)
  - SUICIDAL IDEATION [None]
